FAERS Safety Report 6814770-6 (Version None)
Quarter: 2010Q3

REPORT INFORMATION
  Report Type: 
  Country: None (occurrence: None)
  Receive Date: 20100702
  Receipt Date: 20100618
  Transmission Date: 20110219
  Serious: Yes (Hospitalization)
  Sender: FDA-Public Use
  Company Number: A0789975A

PATIENT
  Age: 61 Year
  Sex: Female
  Weight: 93.6 kg

DRUGS (7)
  1. AVANDIA [Suspect]
     Indication: DIABETES MELLITUS
     Dosage: 4MG TWICE PER DAY
     Route: 048
     Dates: end: 20071105
  2. GLUCOPHAGE [Concomitant]
  3. GLUCOTROL [Concomitant]
  4. CELEXA [Concomitant]
  5. LISINOPRIL [Concomitant]
  6. PRAVASTATIN [Concomitant]
  7. ESTRATEST [Concomitant]

REACTIONS (4)
  - CARDIAC DISORDER [None]
  - CARDIOVASCULAR DISORDER [None]
  - CEREBROVASCULAR ACCIDENT [None]
  - TRANSIENT ISCHAEMIC ATTACK [None]
